FAERS Safety Report 9511168 (Version 1)
Quarter: 2013Q3

REPORT INFORMATION
  Report Type: Spontaneous
  Country: US (occurrence: None)
  Receive Date: 20130906
  Receipt Date: 20130906
  Transmission Date: 20140515
  Serious: Yes (Death)
  Sender: FDA-Public Use
  Company Number: 2013-394

PATIENT
  Age: 73 Year
  Sex: Female

DRUGS (3)
  1. PRIATT (ZICONOTIDE) INTRATHECAL INFUSION [Suspect]
     Dosage: 0.06 UG, QH, INTRATHECAL
  2. BUPIVACAINE HYDROCHLORIDE [Suspect]
     Dosage: 0.24 UG, QH, INTRATHECAL
  3. DILAUDID (HYDROMORPHONE HYDROCHLORIDE) INJECTION [Suspect]
     Dosage: 0.02 UG, QH, INTRATHECAL

REACTIONS (1)
  - Uterine cancer [None]
